FAERS Safety Report 8617479-1 (Version None)
Quarter: 2012Q3

REPORT INFORMATION
  Report Type: 
  Country: None (occurrence: None)
  Receive Date: 20120824
  Receipt Date: 20120104
  Transmission Date: 20120928
  Serious: No
  Sender: FDA-Public Use
  Company Number: US-ASTRAZENECA-2011SE65169

PATIENT
  Age: 58 Year
  Sex: Female
  Weight: 99.3 kg

DRUGS (8)
  1. PRIMIDONE [Concomitant]
  2. ABILISI [Concomitant]
  3. INDERAL [Concomitant]
  4. LORAZEPAN [Concomitant]
  5. LEVETEROXINE [Concomitant]
  6. FLONAS [Concomitant]
  7. LAMIDCAL [Concomitant]
  8. SYMBICORT [Suspect]
     Indication: ASTHMA
     Dosage: 160MCG/4.5 TWO PUFFS, TWICE DAILY
     Route: 055
     Dates: start: 20111001

REACTIONS (2)
  - DYSPNOEA [None]
  - DRUG EFFECT DECREASED [None]
